FAERS Safety Report 8229385-5 (Version None)
Quarter: 2012Q1

REPORT INFORMATION
  Report Type: 
  Country: None (occurrence: None)
  Receive Date: 20120322
  Receipt Date: 20120313
  Transmission Date: 20120608
  Serious: Yes (Hospitalization, Disabling)
  Sender: FDA-Public Use
  Company Number: US-JNJFOC-20111008607

PATIENT
  Sex: Female

DRUGS (6)
  1. STELARA [Suspect]
     Indication: PSORIASIS
     Route: 058
     Dates: start: 20110623
  2. AQUAPHOR [Concomitant]
  3. SAL-ACID [Concomitant]
     Dates: start: 20100101
  4. SAL-ACID [Concomitant]
     Indication: PSORIASIS
     Dates: start: 20080101
  5. STELARA [Suspect]
     Route: 058
     Dates: start: 20110721
  6. ALL OTHER THERAPEUTIC PRODUCTS [Concomitant]

REACTIONS (1)
  - PULMONARY FIBROSIS [None]
